FAERS Safety Report 5287201-8 (Version None)
Quarter: 2007Q1

REPORT INFORMATION
  Report Type: 
  Country: None (occurrence: None)
  Receive Date: 20070116
  Receipt Date: 20061013
  Transmission Date: 20070707
  Serious: No
  Sender: FDA-Public Use
  Company Number: 2006SP003649

PATIENT
  Age: 36 Year
  Sex: Female
  Weight: 52.1637 kg

DRUGS (4)
  1. LUNESTA [Suspect]
     Indication: INSOMNIA
     Dosage: SEE IMAGE
     Route: 048
     Dates: start: 20060101, end: 20061001
  2. LUNESTA [Suspect]
     Indication: INSOMNIA
     Dosage: SEE IMAGE
     Route: 048
     Dates: start: 20061001
  3. ROZEREM [Suspect]
     Indication: INSOMNIA
     Dosage: 8 MG; 1X; ORAL
     Route: 048
     Dates: start: 20061001, end: 20061001
  4. AMITRIPTYLINE HCL [Concomitant]

REACTIONS (6)
  - ALOPECIA [None]
  - ANXIETY [None]
  - DYSGEUSIA [None]
  - MALAISE [None]
  - MUSCLE TWITCHING [None]
  - SOMNOLENCE [None]
